FAERS Safety Report 24054976 (Version 1)
Quarter: 2024Q3

REPORT INFORMATION
  Report Type: Spontaneous
  Country: US (occurrence: None)
  Receive Date: 20240703
  Receipt Date: 20240703
  Transmission Date: 20241017
  Serious: Yes (Hospitalization)
  Sender: Public
  Company Number: None

PATIENT
  Sex: Male

DRUGS (13)
  1. AMBRISENTAN [Suspect]
     Active Substance: AMBRISENTAN
     Indication: Pulmonary arterial hypertension
     Dosage: FREQUENCY : DAILY;?
     Route: 048
  2. TADALAFIL [Suspect]
     Active Substance: TADALAFIL
  3. CUVITRU [Concomitant]
     Active Substance: HUMAN IMMUNOGLOBULIN G
  4. DIGOXIN [Concomitant]
     Active Substance: DIGOXIN
  5. ATROVENT HFA [Concomitant]
     Active Substance: IPRATROPIUM BROMIDE
  6. CETIRIZINE HCL CHILDRENS [Concomitant]
  7. DIPHENHYDRAMINE HYDROCHLO [Concomitant]
  8. PROAIR HFA [Concomitant]
     Active Substance: ALBUTEROL SULFATE
  9. EPIPEN-JR 2-PAK [Concomitant]
  10. FUROSEMIDE [Concomitant]
     Active Substance: FUROSEMIDE
  11. VITAMIN D3 [Concomitant]
     Active Substance: CHOLECALCIFEROL
  12. SPIRONOLACTONE [Concomitant]
     Active Substance: SPIRONOLACTONE
  13. ALDACTONE [Concomitant]
     Active Substance: SPIRONOLACTONE

REACTIONS (1)
  - Hospitalisation [None]
